FAERS Safety Report 9533771 (Version 1)
Quarter: 2013Q3

REPORT INFORMATION
  Report Type: Spontaneous
  Country: US (occurrence: US)
  Receive Date: 20130918
  Receipt Date: 20130918
  Transmission Date: 20140515
  Serious: No
  Sender: FDA-Public Use
  Company Number: US-PURDUE-USA-2011-0078693

PATIENT
  Sex: Male

DRUGS (2)
  1. BUTRANS [Suspect]
     Indication: PAIN
     Dosage: 20 MCG, Q1H
     Route: 062
     Dates: start: 201109, end: 20111116
  2. MORPHINE SULFATE (SIMILAR TO NDA 19-516) [Concomitant]
     Indication: PAIN
     Dosage: 15 MG, Q4- 6H
     Route: 048
     Dates: start: 20111116

REACTIONS (4)
  - Drug effect decreased [Unknown]
  - Product adhesion issue [Unknown]
  - Drug ineffective [Unknown]
  - Pain [Unknown]
